FAERS Safety Report 4592859-2 (Version None)
Quarter: 2005Q1

REPORT INFORMATION
  Report Type: 
  Country: None (occurrence: None)
  Receive Date: 20050228
  Receipt Date: 20050218
  Transmission Date: 20050727
  Serious: Yes (Hospitalization)
  Sender: FDA-Public Use
  Company Number: US-ROCHE-396160

PATIENT
  Age: 60 Year
  Sex: Male

DRUGS (11)
  1. CELLCEPT [Suspect]
     Route: 048
     Dates: start: 20040901
  2. MICARDIS [Suspect]
     Indication: HYPERTENSION
     Route: 048
     Dates: start: 20041229, end: 20050209
  3. TACROLIMUS [Concomitant]
     Indication: RENAL TRANSPLANT
     Route: 048
     Dates: start: 20040901
  4. PREDNISONE [Concomitant]
     Route: 048
     Dates: start: 20040901
  5. BACTRIM [Concomitant]
     Indication: RENAL TRANSPLANT
     Route: 048
  6. NORVASC [Concomitant]
     Indication: HYPERTENSION
     Route: 048
  7. ATENOLOL [Concomitant]
     Indication: HYPERTENSION
     Route: 048
  8. ASPIRIN [Concomitant]
     Indication: DRUG USE FOR UNKNOWN INDICATION
     Route: 048
  9. LASIX [Concomitant]
     Indication: HYPERTENSION
     Route: 048
  10. IRON [Concomitant]
     Indication: ANAEMIA
     Route: 048
  11. GLUCOTROL [Concomitant]

REACTIONS (1)
  - APLASTIC ANAEMIA [None]
